FAERS Safety Report 6928950-2 (Version None)
Quarter: 2010Q3

REPORT INFORMATION
  Report Type: 
  Country: None (occurrence: None)
  Receive Date: 20100817
  Receipt Date: 20100805
  Transmission Date: 20110219
  Serious: Yes (Other)
  Sender: FDA-Public Use
  Company Number: US-PFIZER INC-2010099015

PATIENT
  Age: 56 Year
  Sex: Female
  Weight: 95.238 kg

DRUGS (4)
  1. CHANTIX [Suspect]
     Indication: SMOKING CESSATION THERAPY
     Dosage: 0.5 MG, 1X/DAY
     Route: 048
     Dates: start: 20100701, end: 20100701
  2. CHANTIX [Suspect]
     Dosage: 0.5 MG, UNKNOWN FREQUENCY
     Route: 048
     Dates: start: 20100701
  3. BENICAR [Concomitant]
     Indication: HYPERTENSION
     Dosage: 20 MG, 2X/DAY
     Route: 048
  4. LEVOXYL [Concomitant]
     Indication: HYPOTHYROIDISM
     Dosage: 225 MG, 1X/DAY
     Route: 048

REACTIONS (2)
  - NERVOUSNESS [None]
  - WITHDRAWAL SYNDROME [None]
